FAERS Safety Report 26010339 (Version 1)
Quarter: 2025Q4

REPORT INFORMATION
  Report Type: Spontaneous
  Country: MY (occurrence: MY)
  Receive Date: 20251107
  Receipt Date: 20251107
  Transmission Date: 20260119
  Serious: Yes (Other)
  Sender: STRIDES
  Company Number: MY-STRIDES ARCOLAB LIMITED-2025SP013854

PATIENT
  Age: 22 Year
  Sex: Female

DRUGS (13)
  1. METHOTREXATE [Suspect]
     Active Substance: METHOTREXATE
     Indication: Scleritis
     Dosage: UNK
     Route: 048
  2. METHOTREXATE [Suspect]
     Active Substance: METHOTREXATE
     Indication: Anti-neutrophil cytoplasmic antibody positive vasculitis
  3. IBUPROFEN [Suspect]
     Active Substance: IBUPROFEN
     Indication: Scleritis
     Dosage: 200 MG, TID
     Route: 048
  4. IBUPROFEN [Suspect]
     Active Substance: IBUPROFEN
     Indication: Anti-neutrophil cytoplasmic antibody positive vasculitis
  5. PREDNISONE [Suspect]
     Active Substance: PREDNISONE
     Indication: Scleritis
     Dosage: 60 MG, QD
     Route: 048
  6. PREDNISONE [Suspect]
     Active Substance: PREDNISONE
     Indication: Anti-neutrophil cytoplasmic antibody positive vasculitis
     Dosage: TAPERED TO 10 MG DAILY OVER THREE MONTHS
     Route: 065
  7. PREDNISONE [Suspect]
     Active Substance: PREDNISONE
     Dosage: MAINTENANCE PREDNISOLONE DOSE OF 10 MG DAILY
     Route: 065
  8. AZATHIOPRINE [Suspect]
     Active Substance: AZATHIOPRINE
     Indication: Granulomatosis with polyangiitis
     Dosage: UNK
     Route: 048
  9. DEXAMETHASONE [Suspect]
     Active Substance: DEXAMETHASONE
     Indication: Scleritis
     Dosage: UNK
     Route: 061
  10. DEXAMETHASONE [Suspect]
     Active Substance: DEXAMETHASONE
     Indication: Anti-neutrophil cytoplasmic antibody positive vasculitis
  11. CYCLOPHOSPHAMIDE [Concomitant]
     Active Substance: CYCLOPHOSPHAMIDE
     Indication: Granulomatosis with polyangiitis
     Dosage: UNK
     Route: 042
  12. METHYLPREDNISOLONE [Concomitant]
     Active Substance: METHYLPREDNISOLONE
     Indication: Granulomatosis with polyangiitis
     Dosage: 1 GRAM, QD FOR THREE DOSES, FOLLOWED BY A FIFTH DOSE OF IV CYCLOPHOSPHAMIDE
     Route: 042
  13. RITUXIMAB [Concomitant]
     Active Substance: RITUXIMAB
     Indication: Granulomatosis with polyangiitis
     Dosage: UNK
     Route: 042

REACTIONS (3)
  - Disease recurrence [Recovered/Resolved]
  - Drug ineffective for unapproved indication [Unknown]
  - Off label use [Unknown]
